FAERS Safety Report 19102611 (Version 1)
Quarter: 2021Q2

REPORT INFORMATION
  Report Type: Spontaneous
  Country: US (occurrence: US)
  Receive Date: 20210407
  Receipt Date: 20210407
  Transmission Date: 20210717
  Serious: Yes (Other)
  Sender: FDA-Public Use
  Company Number: None

PATIENT
  Age: 24 Year
  Sex: Female
  Weight: 58.5 kg

DRUGS (7)
  1. ALBUTEROL HFA 17GM [Concomitant]
  2. PENICILLIN VK [Suspect]
     Active Substance: PENICILLIN V POTASSIUM
     Indication: ANTIBIOTIC THERAPY
     Dosage: ?          QUANTITY:1 TABLET(S);?
     Route: 048
     Dates: start: 20210330, end: 20210331
  3. FLUTICASONE NASAL 50MCG [Concomitant]
     Active Substance: FLUTICASONE
  4. PENICILLIN VK 500MG TABLET [Concomitant]
     Active Substance: PENICILLIN V POTASSIUM
  5. ACETAMINOPHEN 325MG TAB [Concomitant]
  6. NORETHINDRONE 0.35MG TAB [Concomitant]
  7. OXYCODONE 5MG [Concomitant]
     Active Substance: OXYCODONE

REACTIONS (2)
  - Rash [None]
  - Swelling [None]

NARRATIVE: CASE EVENT DATE: 20210331
